FAERS Safety Report 5600732-3 (Version None)
Quarter: 2008Q1

REPORT INFORMATION
  Report Type: 
  Country: None (occurrence: None)
  Receive Date: 20080123
  Receipt Date: 20080116
  Transmission Date: 20080703
  Serious: Yes (Disabling)
  Sender: FDA-Public Use
  Company Number: US-MERCK-0801USA03511

PATIENT
  Age: 67 Year
  Sex: Female

DRUGS (8)
  1. ZOCOR [Suspect]
     Indication: BLOOD CHOLESTEROL
     Route: 048
     Dates: start: 20050517, end: 20060504
  2. ZOCOR [Suspect]
     Route: 048
     Dates: start: 20060505, end: 20080111
  3. LOTENSIN [Concomitant]
     Route: 065
  4. ALLEGRA [Concomitant]
     Route: 065
  5. DETROL LA [Concomitant]
     Route: 065
  6. PROZAC [Concomitant]
     Route: 065
  7. ATIVAN [Concomitant]
     Route: 065
  8. NEXIUM [Concomitant]
     Route: 065

REACTIONS (5)
  - BLOOD CREATINE PHOSPHOKINASE INCREASED [None]
  - DYSPHAGIA [None]
  - LIVER FUNCTION TEST ABNORMAL [None]
  - MUSCLE SPASMS [None]
  - MUSCULAR WEAKNESS [None]
